FAERS Safety Report 6354494-5 (Version None)
Quarter: 2009Q3

REPORT INFORMATION
  Report Type: 
  Country: None (occurrence: None)
  Receive Date: 20090909
  Receipt Date: 20090831
  Transmission Date: 20100115
  Serious: Yes (Hospitalization)
  Sender: FDA-Public Use
  Company Number: 230091J09USA

PATIENT
  Age: 52 Year
  Sex: Female
  Weight: 73 kg

DRUGS (3)
  1. REBIF [Suspect]
     Indication: MULTIPLE SCLEROSIS
     Dosage: 44 MCG, 3 IN 1 WEEKS, SUBCUTANEOUS
     Route: 058
     Dates: start: 20090519, end: 20090824
  2. UNSPECIFIED MEDICATIONS(ALL OTHER THERAPEUTIC PRODUCTS) [Concomitant]
  3. TYLENOL [Concomitant]

REACTIONS (4)
  - BREAST CANCER IN SITU [None]
  - MAMMOGRAM ABNORMAL [None]
  - NUCLEAR MAGNETIC RESONANCE IMAGING BREAST ABNORMAL [None]
  - PLATELET COUNT DECREASED [None]
